FAERS Safety Report 7039256-8 (Version None)
Quarter: 2010Q4

REPORT INFORMATION
  Report Type: 
  Country: None (occurrence: None)
  Receive Date: 20101012
  Receipt Date: 20101004
  Transmission Date: 20110411
  Serious: No
  Sender: FDA-Public Use
  Company Number: US-PFIZER INC-2010126284

PATIENT
  Sex: Male
  Weight: 115.19 kg

DRUGS (2)
  1. CHANTIX [Suspect]
     Indication: SMOKING CESSATION THERAPY
     Dosage: UNK
     Route: 048
     Dates: start: 20080101, end: 20080101
  2. PERCOCET [Concomitant]
     Indication: PAIN
     Dosage: 5 MG, 4X/DAY

REACTIONS (1)
  - ABNORMAL DREAMS [None]
